FAERS Safety Report 5646464-7 (Version None)
Quarter: 2008Q1

REPORT INFORMATION
  Report Type: 
  Country: None (occurrence: None)
  Receive Date: 20080303
  Receipt Date: 20080228
  Transmission Date: 20080703
  Serious: Yes (Death, Hospitalization, Other)
  Sender: FDA-Public Use
  Company Number: US-BRISTOL-MYERS SQUIBB COMPANY-14094197

PATIENT
  Age: 22 Year
  Sex: Female

DRUGS (2)
  1. CARBOPLATIN [Suspect]
     Indication: ASTROCYTOMA
     Dates: start: 20071205, end: 20080109
  2. ENZASTAURIN [Suspect]
     Indication: ASTROCYTOMA
     Dates: start: 20071205, end: 20080202

REACTIONS (7)
  - ASPIRATION [None]
  - CEREBROVASCULAR ACCIDENT [None]
  - HAEMOGLOBIN DECREASED [None]
  - PNEUMOTHORAX [None]
  - SOMNOLENCE [None]
  - THROMBOCYTOPENIA [None]
  - URINARY TRACT INFECTION [None]
